FAERS Safety Report 17885415 (Version 1)
Quarter: 2020Q3

REPORT INFORMATION
  Report Type: Report from Study
  Country: BE (occurrence: BE)
  Receive Date: 20200611
  Receipt Date: 20200611
  Transmission Date: 20201105
  Serious: Yes (Death, Hospitalization)
  Sender: FDA-Public Use
  Company Number: BE-PFIZER INC-2020-07667

PATIENT
  Age: 51 Year
  Sex: Female
  Weight: 83.7 kg

DRUGS (6)
  1. METEOXANE [AMOBARBITAL;ATROPA BELLADONNA EXTRACT;DIMETICONE;ERGOTAMINE [Concomitant]
     Indication: ABDOMINAL DISCOMFORT
     Dosage: UNK
     Dates: start: 20200316, end: 20200325
  2. KLIPAL CODEINE [Concomitant]
     Active Substance: ACETAMINOPHEN\CODEINE PHOSPHATE
     Indication: PAIN
     Dosage: UNK
     Dates: start: 20200303, end: 20200325
  3. BINIMETINIB [Suspect]
     Active Substance: BINIMETINIB
     Indication: PANCREATIC CARCINOMA METASTATIC
     Dosage: 45 MG, 2X/DAY
     Route: 048
     Dates: start: 20200311, end: 20200318
  4. LOCOIDEN [Concomitant]
     Indication: SKIN TOXICITY
     Dosage: UNK
     Dates: start: 20200316
  5. TALAZOPARIB. [Suspect]
     Active Substance: TALAZOPARIB
     Indication: METASTATIC NEOPLASM
     Dosage: 0.75 MG, 1X/DAY
     Route: 048
     Dates: start: 20200311, end: 20200324
  6. DIAZEPAM. [Concomitant]
     Active Substance: DIAZEPAM
     Indication: ANXIETY
     Dosage: UNK
     Dates: start: 20200316

REACTIONS (2)
  - Deep vein thrombosis [Not Recovered/Not Resolved]
  - Pulmonary embolism [Not Recovered/Not Resolved]

NARRATIVE: CASE EVENT DATE: 20200325
